FAERS Safety Report 6184652-4 (Version None)
Quarter: 2009Q2

REPORT INFORMATION
  Report Type: 
  Country: None (occurrence: None)
  Receive Date: 20090508
  Receipt Date: 20090501
  Transmission Date: 20091009
  Serious: Yes (Hospitalization)
  Sender: FDA-Public Use
  Company Number: DE-TEVA-185926ISR

PATIENT
  Sex: Female
  Weight: 82 kg

DRUGS (8)
  1. FLUOROURACIL [Suspect]
     Indication: COLORECTAL CANCER METASTATIC
     Route: 042
     Dates: start: 20081222
  2. FOLINIC ACID [Suspect]
     Indication: COLORECTAL CANCER METASTATIC
     Route: 042
     Dates: start: 20081222
  3. IRINOTECAN HCL [Suspect]
     Indication: COLORECTAL CANCER METASTATIC
     Route: 042
     Dates: start: 20081222
  4. SUNITIMIB MALATE [Suspect]
     Route: 048
     Dates: start: 20081222, end: 20090107
  5. SUNITIMIB MALATE [Suspect]
     Route: 048
     Dates: start: 20090108
  6. METFORMIN HYDROCHLORIDE [Concomitant]
  7. DIOVAN HCT [Concomitant]
  8. MORPHINE SULFATE [Concomitant]
     Dates: start: 20090120

REACTIONS (1)
  - PULMONARY EMBOLISM [None]
